FAERS Safety Report 15074440 (Version 2)
Quarter: 2018Q2

REPORT INFORMATION
  Report Type: Report from Study
  Country: CL (occurrence: CL)
  Receive Date: 20180627
  Receipt Date: 20180627
  Transmission Date: 20180711
  Serious: Yes (Hospitalization)
  Sender: FDA-Public Use
  Company Number: CL-BAYER-2018-116617

PATIENT
  Age: 74 Year
  Sex: Male

DRUGS (16)
  1. CAPTOPRIL. [Concomitant]
     Active Substance: CAPTOPRIL
     Indication: PROPHYLAXIS
     Dosage: 25 MG, QD
     Route: 048
     Dates: start: 20180424, end: 20180424
  2. BENDAMUSTINE [Suspect]
     Active Substance: BENDAMUSTINE
     Indication: NON-HODGKIN^S LYMPHOMA RECURRENT
     Dosage: 174 MG (EVERY 4 WEEKS FOR 6 CYCLES)
     Route: 042
     Dates: start: 20180522, end: 20180522
  3. COPANLISIB. [Suspect]
     Active Substance: COPANLISIB
     Indication: NON-HODGKIN^S LYMPHOMA RECURRENT
     Dosage: 60 MG
     Route: 042
     Dates: start: 20180424, end: 20180424
  4. RITUXIMAB. [Suspect]
     Active Substance: RITUXIMAB
     Indication: NON-HODGKIN^S LYMPHOMA RECURRENT
     Dosage: 723.5 MG (EVERY 4 WEEKS FOR 6 CYCLES)
     Route: 042
     Dates: start: 20180424, end: 20180424
  5. BENDAMUSTINE [Suspect]
     Active Substance: BENDAMUSTINE
     Indication: NON-HODGKIN^S LYMPHOMA RECURRENT
     Dosage: 173.7 MG (EVERY 4 WEEKS FOR 6 CYCLES)
     Route: 042
     Dates: start: 20180425, end: 20180425
  6. BENDAMUSTINE [Suspect]
     Active Substance: BENDAMUSTINE
     Indication: NON-HODGKIN^S LYMPHOMA RECURRENT
     Dosage: 174 MG (EVERY 4 WEEKS FOR 6 CYCLES)
     Route: 042
     Dates: start: 20180523, end: 20180523
  7. COPANLISIB. [Suspect]
     Active Substance: COPANLISIB
     Indication: NON-HODGKIN^S LYMPHOMA RECURRENT
     Dosage: 60 MG
     Route: 042
     Dates: start: 20180502, end: 20180502
  8. GLAFORNIL [Concomitant]
     Indication: HYPERGLYCAEMIA
     Dosage: 500 MG, TID
     Route: 048
     Dates: start: 20180522
  9. RITUXIMAB. [Suspect]
     Active Substance: RITUXIMAB
     Indication: NON-HODGKIN^S LYMPHOMA RECURRENT
     Dosage: 724 MG (EVERY 4 WEEKS FOR 6 CYCLES)
     Route: 042
     Dates: start: 20180522, end: 20180522
  10. COTRIMOXAZOLE [Concomitant]
     Active Substance: SULFAMETHOXAZOLE\TRIMETHOPRIM
     Indication: INFECTION PROPHYLAXIS
     Dosage: 1 DF, TIW
     Route: 048
     Dates: start: 20180321, end: 20180406
  11. PREDNISONE. [Concomitant]
     Active Substance: PREDNISONE
     Indication: NON-HODGKIN^S LYMPHOMA UNSPECIFIED HISTOLOGY INDOLENT
     Dosage: 20 MG, QD
     Route: 048
     Dates: start: 20180321, end: 20180408
  12. METFORMIN [Concomitant]
     Active Substance: METFORMIN HYDROCHLORIDE
     Indication: HYPERGLYCAEMIA
     Dosage: 850 MG, QD
     Route: 048
     Dates: start: 20180424, end: 20180521
  13. RAPITARD INSULIN NOVO [Concomitant]
     Indication: HYPERGLYCAEMIA
     Dosage: UNK
     Route: 058
     Dates: start: 20180522, end: 20180522
  14. COPANLISIB. [Suspect]
     Active Substance: COPANLISIB
     Indication: NON-HODGKIN^S LYMPHOMA RECURRENT
     Dosage: 60 MG
     Route: 042
     Dates: start: 20180522, end: 20180522
  15. LOSARTAN. [Concomitant]
     Active Substance: LOSARTAN
     Indication: HYPERTENSION
     Dosage: 50 MG, QD
     Route: 048
     Dates: start: 2017
  16. BENDAMUSTINE [Suspect]
     Active Substance: BENDAMUSTINE
     Indication: NON-HODGKIN^S LYMPHOMA RECURRENT
     Dosage: 173.7 MG (EVERY 4 WEEKS FOR 6 CYCLES)
     Route: 042
     Dates: start: 20180424, end: 20180424

REACTIONS (1)
  - Pyelonephritis [Not Recovered/Not Resolved]

NARRATIVE: CASE EVENT DATE: 20180608
